FAERS Safety Report 23888869 (Version 1)
Quarter: 2024Q2

REPORT INFORMATION
  Report Type: Spontaneous
  Country: US (occurrence: US)
  Receive Date: 20240523
  Receipt Date: 20240523
  Transmission Date: 20240716
  Serious: Yes (Other)
  Sender: FDA-Public Use
  Company Number: US-Blueprint Medicines Corporation-3571

PATIENT
  Age: 79 Year
  Sex: Male

DRUGS (1)
  1. AYVAKIT [Suspect]
     Active Substance: AVAPRITINIB
     Indication: Gastrointestinal stromal tumour
     Route: 065
     Dates: start: 20230525

REACTIONS (5)
  - Chest injury [Unknown]
  - Fall [Unknown]
  - Sinus disorder [Unknown]
  - Tenderness [Unknown]
  - Jaw disorder [Unknown]

NARRATIVE: CASE EVENT DATE: 20240409
